FAERS Safety Report 13490355 (Version 3)
Quarter: 2017Q2

REPORT INFORMATION
  Report Type: Spontaneous
  Country: PL (occurrence: PL)
  Receive Date: 20170427
  Receipt Date: 20170428
  Transmission Date: 20170830
  Serious: Yes (Death, Hospitalization)
  Sender: FDA-Public Use
  Company Number: PL-ABBVIE-17K-129-1954436-00

PATIENT
  Age: 27 Year
  Sex: Male

DRUGS (2)
  1. HUMIRA [Suspect]
     Active Substance: ADALIMUMAB
     Route: 058
  2. HUMIRA [Suspect]
     Active Substance: ADALIMUMAB
     Indication: CROHN^S DISEASE
     Route: 058
     Dates: start: 20170313, end: 20170329

REACTIONS (2)
  - Malaise [Not Recovered/Not Resolved]
  - Clostridial sepsis [Fatal]

NARRATIVE: CASE EVENT DATE: 20170313
